FAERS Safety Report 13648075 (Version 1)
Quarter: 2017Q2

REPORT INFORMATION
  Report Type: Spontaneous
  Country: RS (occurrence: RS)
  Receive Date: 20170613
  Receipt Date: 20170613
  Transmission Date: 20170830
  Serious: Yes (Hospitalization, Other)
  Sender: FDA-Public Use
  Company Number: RS-BAYER-2017-110571

PATIENT
  Age: 32 Year
  Sex: Female

DRUGS (2)
  1. THALIDOMIDE [Suspect]
     Active Substance: THALIDOMIDE
     Dosage: 100 MG, QD
     Dates: start: 2011, end: 201305
  2. ACETYLSALICYLIC ACID({=100 MG) [Suspect]
     Active Substance: ASPIRIN
     Dosage: 100 MG, BID
     Dates: start: 2011, end: 201308

REACTIONS (5)
  - Epistaxis [None]
  - Gastrointestinal haemorrhage [None]
  - Melaena [None]
  - Biliary colic [None]
  - Haematemesis [None]

NARRATIVE: CASE EVENT DATE: 201307
